FAERS Safety Report 11939507 (Version 1)
Quarter: 2016Q1

REPORT INFORMATION
  Report Type: Spontaneous
  Country: SA (occurrence: SA)
  Receive Date: 20160122
  Receipt Date: 20160122
  Transmission Date: 20160526
  Serious: Yes (Death, Life-Threatening)
  Sender: FDA-Public Use
  Company Number: SA-FRESENIUS KABI-FK201600345

PATIENT
  Age: 5 Day
  Sex: Male

DRUGS (2)
  1. HEPARIN (MANUFACTURER UNKNOWN) [Suspect]
     Active Substance: HEPARIN SODIUM
     Indication: VENA CAVA THROMBOSIS
  2. HEPARIN (MANUFACTURER UNKNOWN) [Suspect]
     Active Substance: HEPARIN SODIUM
     Indication: ATRIAL THROMBOSIS
     Route: 065

REACTIONS (2)
  - Pulmonary artery thrombosis [Fatal]
  - Condition aggravated [Not Recovered/Not Resolved]
